FAERS Safety Report 6946267-7 (Version None)
Quarter: 2010Q3

REPORT INFORMATION
  Report Type: 
  Country: None (occurrence: None)
  Receive Date: 20100827
  Receipt Date: 20100819
  Transmission Date: 20110219
  Serious: Yes (Other)
  Sender: FDA-Public Use
  Company Number: CA-GENENTECH-302758

PATIENT
  Sex: Male

DRUGS (6)
  1. RITUXAN [Suspect]
     Indication: LYMPHOMA
     Dosage: 750 MG, Q3W
     Route: 042
     Dates: start: 20100121
  2. CYCLOPHOSPHAMIDE [Suspect]
     Indication: LYMPHOMA
     Dosage: 1500 MG, Q3W
     Route: 042
     Dates: start: 20100121
  3. VINCRISTINE [Suspect]
     Indication: LYMPHOMA
     Dosage: 2 MG, Q3W
     Route: 042
     Dates: start: 20100121
  4. PREDNISONE [Suspect]
     Indication: LYMPHOMA
     Dosage: 80 MG, Q3W
     Route: 048
     Dates: start: 20100121
  5. PREDNISONE [Suspect]
     Dosage: UNK
     Route: 048
  6. VENTOLIN [Concomitant]
     Indication: ASTHMA
     Dosage: UNK

REACTIONS (2)
  - ASTHMA [None]
  - INFUSION RELATED REACTION [None]
